FAERS Safety Report 5693307-1 (Version None)
Quarter: 2008Q2

REPORT INFORMATION
  Report Type: 
  Country: None (occurrence: None)
  Receive Date: 20080403
  Receipt Date: 20071129
  Transmission Date: 20081010
  Serious: No
  Sender: FDA-Public Use
  Company Number: US-BAYER-200715737NA

PATIENT
  Sex: Female
  Weight: 51 kg

DRUGS (1)
  1. MIRENA [Suspect]
     Indication: CONTRACEPTION
     Route: 015
     Dates: start: 20070501

REACTIONS (12)
  - ABDOMINAL DISTENSION [None]
  - ABDOMINAL PAIN [None]
  - ACNE [None]
  - BREAST TENDERNESS [None]
  - DEPRESSION [None]
  - FATIGUE [None]
  - METRORRHAGIA [None]
  - MOOD SWINGS [None]
  - MULTIPLE ALLERGIES [None]
  - PROCEDURAL PAIN [None]
  - SINUSITIS [None]
  - WEIGHT INCREASED [None]
